FAERS Safety Report 4618143-6 (Version None)
Quarter: 2005Q1

REPORT INFORMATION
  Report Type: 
  Country: None (occurrence: None)
  Receive Date: 20050323
  Receipt Date: 20050223
  Transmission Date: 20050727
  Serious: No
  Sender: FDA-Public Use
  Company Number: 10515

PATIENT

DRUGS (3)
  1. PACLITAXEL [Suspect]
     Indication: NEOPLASM
     Dosage: 880 MG/M2 PER_CYCLE IV
     Route: 042
  2. CARBOPLATIN [Suspect]
     Indication: NEOPLASM
     Dosage: 5 AUC PER_CYCLE IV
     Route: 042
  3. DOCOSAHEXAENOIC ACID [Suspect]

REACTIONS (2)
  - DRUG TOXICITY [None]
  - NEUTROPENIC SEPSIS [None]
